FAERS Safety Report 13677659 (Version 2)
Quarter: 2017Q3

REPORT INFORMATION
  Report Type: Spontaneous
  Country: JP (occurrence: JP)
  Receive Date: 20170622
  Receipt Date: 20170814
  Transmission Date: 20171127
  Serious: Yes (Death, Other)
  Sender: FDA-Public Use
  Company Number: JP-GLAXOSMITHKLINE-JP2017JPN094809

PATIENT
  Age: 78 Year
  Sex: Male
  Weight: 37 kg

DRUGS (6)
  1. TRERIEF [Concomitant]
     Active Substance: ZONISAMIDE
     Dosage: UNK
  2. MAGMITT [Concomitant]
     Active Substance: MAGNESIUM OXIDE
     Dosage: UNK
     Dates: start: 201701
  3. ARICEPT [Concomitant]
     Active Substance: DONEPEZIL HYDROCHLORIDE
     Dosage: UNK
     Dates: start: 201703
  4. NEUPRO [Concomitant]
     Active Substance: ROTIGOTINE
     Dosage: UNK
     Dates: start: 201702
  5. AVOLVE [Suspect]
     Active Substance: DUTASTERIDE
     Indication: BENIGN PROSTATIC HYPERPLASIA
     Dosage: 0.5 MG, QD
     Route: 048
     Dates: start: 20170505, end: 20170525
  6. MENESIT [Concomitant]
     Active Substance: CARBIDOPA\LEVODOPA
     Dosage: UNK

REACTIONS (6)
  - Pneumonia [Fatal]
  - Hepatic function abnormal [Recovering/Resolving]
  - Ascites [Fatal]
  - Respiratory failure [Fatal]
  - Hypoalbuminaemia [Fatal]
  - Pleural effusion [Fatal]

NARRATIVE: CASE EVENT DATE: 20170511
